FAERS Safety Report 10052394 (Version 1)
Quarter: 2014Q2

REPORT INFORMATION
  Report Type: Spontaneous
  Country: None (occurrence: None)
  Receive Date: 20140401
  Receipt Date: 20140401
  Transmission Date: 20141212
  Serious: No
  Sender: FDA-Public Use
  Company Number: None

PATIENT
  Age: 27 Year
  Sex: Male
  Weight: 80 kg

DRUGS (1)
  1. MIRVASO [Suspect]
     Indication: ERYTHEMA
     Route: 061
     Dates: start: 20140328, end: 20140330

REACTIONS (4)
  - Flushing [None]
  - Erythema [None]
  - Condition aggravated [None]
  - Rebound effect [None]
